FAERS Safety Report 19938251 (Version 1)
Quarter: 2021Q4

REPORT INFORMATION
  Report Type: Spontaneous
  Country: US (occurrence: US)
  Receive Date: 20211011
  Receipt Date: 20211011
  Transmission Date: 20220303
  Serious: Yes (Hospitalization)
  Sender: FDA-Public Use
  Company Number: US-NOVOPROD-853719

PATIENT
  Age: 84 Year
  Sex: Female

DRUGS (2)
  1. TRESIBA [Suspect]
     Active Substance: INSULIN DEGLUDEC
     Indication: Product used for unknown indication
     Dosage: UNK
     Route: 058
  2. TREDOL [ATENOLOL] [Concomitant]
     Indication: Product used for unknown indication
     Dosage: UNK
     Route: 058

REACTIONS (4)
  - Pain [Unknown]
  - Unevaluable event [Not Recovered/Not Resolved]
  - Blood pressure increased [Unknown]
  - Dehydration [Unknown]

NARRATIVE: CASE EVENT DATE: 20210701
